FAERS Safety Report 12769514 (Version 3)
Quarter: 2017Q1

REPORT INFORMATION
  Report Type: Report from Study
  Country: NL (occurrence: NL)
  Receive Date: 20160922
  Receipt Date: 20170204
  Transmission Date: 20170428
  Serious: Yes (Death, Hospitalization, Other)
  Sender: FDA-Public Use
  Company Number: NL-AMGEN-NLDSL2016126097

PATIENT
  Age: 84 Year
  Sex: Female

DRUGS (1)
  1. ARANESP [Suspect]
     Active Substance: DARBEPOETIN ALFA
     Indication: NEPHROGENIC ANAEMIA
     Dosage: 30 MUG (0.3 ML), Q2WK
     Route: 058

REACTIONS (4)
  - Diabetic vascular disorder [Unknown]
  - Death [Fatal]
  - Hospitalisation [Unknown]
  - Wound [Unknown]

NARRATIVE: CASE EVENT DATE: 20160913
